FAERS Safety Report 4779356-6 (Version None)
Quarter: 2005Q3

REPORT INFORMATION
  Report Type: 
  Country: None (occurrence: None)
  Receive Date: 20050914
  Receipt Date: 20050628
  Transmission Date: 20060218
  Serious: Yes (Other)
  Sender: FDA-Public Use
  Company Number: 409342

PATIENT
  Sex: Female

DRUGS (3)
  1. BONIVA [Suspect]
     Dates: start: 20050530
  2. FOSAMAX [Concomitant]
  3. ACTONEL [Concomitant]

REACTIONS (3)
  - ALOPECIA [None]
  - BONE PAIN [None]
  - TOOTHACHE [None]
